FAERS Safety Report 13034637 (Version 2)
Quarter: 2017Q1

REPORT INFORMATION
  Report Type: Spontaneous
  Country: DE (occurrence: DE)
  Receive Date: 20161216
  Receipt Date: 20170129
  Transmission Date: 20170428
  Serious: Yes (Hospitalization, Other)
  Sender: FDA-Public Use
  Company Number: PHHY2016DE172394

PATIENT
  Age: 49 Year
  Sex: Female

DRUGS (2)
  1. APONAL [Concomitant]
     Active Substance: DOXEPIN HYDROCHLORIDE
     Indication: SLEEP DISORDER
     Dosage: 25 MG, PRN
     Route: 048
     Dates: start: 2013
  2. GILENYA [Suspect]
     Active Substance: FINGOLIMOD HYDROCHLORIDE
     Indication: MULTIPLE SCLEROSIS
     Dosage: 0.5 MG, QD
     Route: 048
     Dates: start: 20111101, end: 201607

REACTIONS (1)
  - Kaposi^s sarcoma [Recovered/Resolved with Sequelae]

NARRATIVE: CASE EVENT DATE: 2014
